FAERS Safety Report 17860082 (Version 12)
Quarter: 2021Q3

REPORT INFORMATION
  Report Type: Other
  Country: CA (occurrence: CA)
  Receive Date: 20200604
  Receipt Date: 20210903
  Transmission Date: 20211014
  Serious: Yes (Hospitalization, Other)
  Sender: FDA-Public Use
  Company Number: CA-ROCHE-2614798

PATIENT
  Age: 54 Year
  Sex: Female

DRUGS (8)
  1. GLUCOSAMINE [Concomitant]
     Active Substance: GLUCOSAMINE
  2. CIPRALEX [Concomitant]
     Active Substance: ESCITALOPRAM OXALATE
  3. OMEGA 3 [Concomitant]
     Active Substance: OMEGA-3 FATTY ACIDS
  4. GABAPENTIN. [Concomitant]
     Active Substance: GABAPENTIN
  5. COVID?19 VACCINE [Concomitant]
     Dosage: 2ND COVID VACCINE
     Dates: start: 20210707
  6. OCREVUS [Suspect]
     Active Substance: OCRELIZUMAB
     Indication: PRIMARY PROGRESSIVE MULTIPLE SCLEROSIS
     Dosage: 300 MG AT DAY 0 AND 14, THEN 600 MG EVERY 6 MONTH
     Route: 042
     Dates: start: 20180730
  7. CALCIUM [Concomitant]
     Active Substance: CALCIUM
  8. DULOXETINE. [Concomitant]
     Active Substance: DULOXETINE
     Indication: PAIN

REACTIONS (14)
  - Fibromyalgia [Not Recovered/Not Resolved]
  - Paraesthesia [Recovered/Resolved]
  - Nasopharyngitis [Recovered/Resolved]
  - Oropharyngeal pain [Recovered/Resolved]
  - Tooth fracture [Recovering/Resolving]
  - Herpes virus infection [Recovered/Resolved]
  - Scar [Not Recovered/Not Resolved]
  - Dry eye [Not Recovered/Not Resolved]
  - Genital herpes [Recovering/Resolving]
  - Uveitis [Recovered/Resolved]
  - Arthritis [Not Recovered/Not Resolved]
  - Nervousness [Unknown]
  - Pyrexia [Recovered/Resolved]
  - Pain [Unknown]

NARRATIVE: CASE EVENT DATE: 20200528
